FAERS Safety Report 6430240-1 (Version None)
Quarter: 2009Q4

REPORT INFORMATION
  Report Type: 
  Country: None (occurrence: None)
  Receive Date: 20091105
  Receipt Date: 20091027
  Transmission Date: 20100525
  Serious: Yes (Hospitalization)
  Sender: FDA-Public Use
  Company Number: 8053762

PATIENT
  Age: 43 Year
  Sex: Female
  Weight: 75 kg

DRUGS (6)
  1. CIMZIA [Suspect]
  2. CORTEF [Concomitant]
  3. XANAX [Concomitant]
  4. VOLTAREN [Concomitant]
  5. DILAUDID [Concomitant]
  6. LYRICA [Concomitant]

REACTIONS (1)
  - URINARY TRACT INFECTION [None]
